FAERS Safety Report 22180903 (Version 11)
Quarter: 2023Q4

REPORT INFORMATION
  Report Type: Report from Study
  Country: MX (occurrence: MX)
  Receive Date: 20230406
  Receipt Date: 20231103
  Transmission Date: 20240110
  Serious: Yes (Hospitalization, Other)
  Sender: FDA-Public Use
  Company Number: MX-002147023-NVSC2022MX167389

PATIENT
  Sex: Female
  Weight: 110 kg

DRUGS (3)
  1. TASIGNA [Suspect]
     Active Substance: NILOTINIB
     Indication: Chronic myeloid leukaemia
     Dosage: 2 DOSAGE FORM, Q12H
     Route: 048
  2. TASIGNA [Suspect]
     Active Substance: NILOTINIB
     Dosage: 2 DOSAGE FORM, BID2SDO (2 CAPSULES IN THE MORNING AND 2 IN THE AFTERNOON)
     Route: 048
  3. TASIGNA [Suspect]
     Active Substance: NILOTINIB
     Dosage: UNK
     Route: 048

REACTIONS (82)
  - Cholecystitis infective [Unknown]
  - Biliary colic [Unknown]
  - Cholelithiasis [Unknown]
  - Oxygen saturation decreased [Unknown]
  - Pain [Unknown]
  - Hyperventilation [Unknown]
  - Asphyxia [Unknown]
  - Abdominal pain [Unknown]
  - Hepatitis [Unknown]
  - Pulmonary oedema [Unknown]
  - Tachycardia [Unknown]
  - Spleen disorder [Recovering/Resolving]
  - Respiratory failure [Unknown]
  - Pericardial effusion [Unknown]
  - Cholecystitis [Unknown]
  - Leukaemia [Unknown]
  - Thrombosis [Unknown]
  - Cardiac failure [Unknown]
  - Splenomegaly [Unknown]
  - Movement disorder [Unknown]
  - Lung disorder [Unknown]
  - Pancreatic disorder [Unknown]
  - Hepatomegaly [Unknown]
  - Stress [Unknown]
  - Food allergy [Unknown]
  - Memory impairment [Unknown]
  - Anger [Unknown]
  - Feeling abnormal [Unknown]
  - Dysania [Unknown]
  - Choking sensation [Unknown]
  - Chest discomfort [Unknown]
  - Crying [Unknown]
  - Discomfort [Unknown]
  - Inflammation [Unknown]
  - Obesity [Unknown]
  - Peripheral swelling [Unknown]
  - Emotional disorder [Unknown]
  - Alopecia [Unknown]
  - Eyelash injury [Unknown]
  - Eating disorder [Unknown]
  - Feeling of despair [Unknown]
  - Mood swings [Unknown]
  - Somnolence [Unknown]
  - Dysstasia [Unknown]
  - Psychiatric symptom [Unknown]
  - Musculoskeletal stiffness [Unknown]
  - Abdominal distension [Unknown]
  - Fluid retention [Unknown]
  - Neoplasm [Recovering/Resolving]
  - Fear [Unknown]
  - Bone marrow disorder [Unknown]
  - White blood cell count abnormal [Unknown]
  - Psoriasis [Unknown]
  - Abdominal pain upper [Unknown]
  - Acne [Unknown]
  - Anxiety [Unknown]
  - Depression [Unknown]
  - Depressed mood [Unknown]
  - Constipation [Unknown]
  - Muscle spasms [Unknown]
  - Weight increased [Unknown]
  - Pain in extremity [Unknown]
  - Malaise [Unknown]
  - Panic attack [Unknown]
  - Speech disorder [Unknown]
  - Thirst [Unknown]
  - Skin discolouration [Unknown]
  - Skin striae [Unknown]
  - Blood disorder [Unknown]
  - Respiratory disorder [Unknown]
  - Abdominal discomfort [Unknown]
  - Rash [Unknown]
  - Weight decreased [Unknown]
  - Asthenia [Unknown]
  - Insomnia [Unknown]
  - Headache [Unknown]
  - Fatigue [Unknown]
  - Dyspnoea [Unknown]
  - Haemoglobin decreased [Unknown]
  - Dry mouth [Unknown]
  - Illness [Unknown]
  - Diarrhoea [Unknown]
